FAERS Safety Report 9399738 (Version 1)
Quarter: 2013Q3

REPORT INFORMATION
  Report Type: Report from Study
  Country: US (occurrence: US)
  Receive Date: 20130715
  Receipt Date: 20130715
  Transmission Date: 20140515
  Serious: Yes (Other)
  Sender: FDA-Public Use
  Company Number: US-JNJFOC-20130608503

PATIENT
  Age: 37 Year
  Sex: Female

DRUGS (8)
  1. REMICADE [Suspect]
     Indication: PRODUCT USED FOR UNKNOWN INDICATION
     Route: 042
  2. REMICADE [Suspect]
     Indication: PRODUCT USED FOR UNKNOWN INDICATION
     Route: 042
     Dates: start: 20110928
  3. ZOVIA [Concomitant]
     Indication: CONTRACEPTION
     Route: 065
  4. ALBUTEROL [Concomitant]
     Indication: ASTHMA
     Route: 065
  5. VITAMIN C [Concomitant]
     Route: 065
  6. CALCIUM [Concomitant]
     Route: 065
  7. FLONASE [Concomitant]
     Indication: MULTIPLE ALLERGIES
     Route: 065
  8. ZYRTEC [Concomitant]
     Indication: MULTIPLE ALLERGIES
     Route: 065

REACTIONS (5)
  - Surgery [Unknown]
  - Angioedema [Unknown]
  - Pruritus [Recovered/Resolved]
  - Infusion related reaction [Recovered/Resolved]
  - Urticaria [Recovered/Resolved]
